FAERS Safety Report 9678839 (Version 3)
Quarter: 2014Q2

REPORT INFORMATION
  Report Type: Spontaneous
  Country: JP (occurrence: JP)
  Receive Date: 20131108
  Receipt Date: 20140422
  Transmission Date: 20141212
  Serious: Yes (Life-Threatening, Hospitalization, Other)
  Sender: FDA-Public Use
  Company Number: JP-GLAXOSMITHKLINE-B0940932A

PATIENT
  Age: 6 Year
  Sex: Female

DRUGS (3)
  1. ALKERAN [Suspect]
     Indication: STEM CELL TRANSPLANT
     Dosage: 45MG PER DAY
     Route: 042
     Dates: start: 20130607, end: 20130608
  2. CARBOPLATIN [Concomitant]
     Indication: STEM CELL TRANSPLANT
     Dosage: 128MG PER DAY
     Route: 042
     Dates: start: 20130603, end: 20130606
  3. ETOPOSIDE [Concomitant]
     Indication: STEM CELL TRANSPLANT
     Dosage: 128MG PER DAY
     Route: 042
     Dates: start: 20130603, end: 20130606

REACTIONS (2)
  - Pulmonary hypertension [Recovering/Resolving]
  - Pulmonary thrombosis [Unknown]
